FAERS Safety Report 13534129 (Version 8)
Quarter: 2017Q4

REPORT INFORMATION
  Report Type: Report from Study
  Country: CA (occurrence: CA)
  Receive Date: 20170510
  Receipt Date: 20171215
  Transmission Date: 20180320
  Serious: Yes (Other)
  Sender: FDA-Public Use
  Company Number: CA-BRISTOL-MYERS SQUIBB COMPANY-BMS-2017-040073

PATIENT
  Age: 50 Year
  Sex: Female

DRUGS (2)
  1. ABATACEPT [Suspect]
     Active Substance: ABATACEPT
     Indication: RHEUMATOID ARTHRITIS
     Dosage: 750 MG, UNK
     Route: 042
     Dates: start: 20150630, end: 20170831
  2. ABATACEPT [Suspect]
     Active Substance: ABATACEPT
     Indication: PRODUCT USED FOR UNKNOWN INDICATION
     Route: 058

REACTIONS (17)
  - Pneumonia [Recovered/Resolved]
  - Secretion discharge [Recovered/Resolved]
  - Nasal congestion [Recovered/Resolved]
  - Cough [Unknown]
  - Headache [Recovered/Resolved]
  - Oropharyngeal pain [Unknown]
  - Fall [Unknown]
  - Productive cough [Unknown]
  - Sinusitis [Recovered/Resolved]
  - Pyrexia [Unknown]
  - Upper limb fracture [Recovering/Resolving]
  - Bronchitis [Recovered/Resolved]
  - Rhinorrhoea [Unknown]
  - Back pain [Not Recovered/Not Resolved]
  - Nasopharyngitis [Recovering/Resolving]
  - Dyspnoea [Unknown]
  - Neck pain [Not Recovered/Not Resolved]

NARRATIVE: CASE EVENT DATE: 201704
